FAERS Safety Report 12182403 (Version 1)
Quarter: 2016Q1

REPORT INFORMATION
  Report Type: Spontaneous
  Country: PH (occurrence: PH)
  Receive Date: 20160316
  Receipt Date: 20160316
  Transmission Date: 20160526
  Serious: Yes (Other)
  Sender: FDA-Public Use
  Company Number: PH-AMGEN-PHLSP2016001413

PATIENT
  Age: 48 Year
  Sex: Male
  Weight: 72 kg

DRUGS (1)
  1. ENBREL [Suspect]
     Active Substance: ETANERCEPT
     Indication: ANKYLOSING SPONDYLITIS
     Dosage: 25 MG, 1X/WEEK
     Route: 058
     Dates: start: 20150506

REACTIONS (2)
  - Hepatic enzyme increased [Recovering/Resolving]
  - Hepatitis B [Recovering/Resolving]

NARRATIVE: CASE EVENT DATE: 20151028
